FAERS Safety Report 4900439-1 (Version None)
Quarter: 2006Q1

REPORT INFORMATION
  Report Type: 
  Country: None (occurrence: None)
  Receive Date: 20060203
  Receipt Date: 20060125
  Transmission Date: 20060701
  Serious: Yes (Hospitalization)
  Sender: FDA-Public Use
  Company Number: US-SANOFI-SYNTHELABO-A03200600457

PATIENT
  Age: 70 Year
  Sex: Male
  Weight: 103 kg

DRUGS (8)
  1. AMBIEN [Suspect]
     Indication: INSOMNIA
     Route: 048
     Dates: start: 19940101, end: 20051205
  2. PROZAC [Suspect]
     Indication: DEPRESSION
     Route: 048
     Dates: start: 19850101, end: 20051205
  3. LITHIUM [Suspect]
     Indication: BIPOLAR DISORDER
     Route: 048
     Dates: start: 19840101, end: 20051205
  4. TERAZOSIN [Concomitant]
     Dosage: UNK
     Route: 048
  5. MICARDIS [Concomitant]
     Dosage: UNK
     Route: 048
  6. DICLOFENAC [Concomitant]
     Route: 048
  7. NORVASC [Concomitant]
     Dosage: UNK
     Route: 048
  8. DARVOCET [Concomitant]
     Dosage: UNK
     Route: 048

REACTIONS (4)
  - CARDIO-RESPIRATORY ARREST [None]
  - COMA [None]
  - DEPRESSION [None]
  - INSOMNIA [None]
